FAERS Safety Report 17365960 (Version 1)
Quarter: 2020Q1

REPORT INFORMATION
  Report Type: Spontaneous
  Country: DE (occurrence: DE)
  Receive Date: 20200204
  Receipt Date: 20200204
  Transmission Date: 20200409
  Serious: Yes (Life-Threatening, Hospitalization, Other)
  Sender: FDA-Public Use
  Company Number: NVSC2020DE027059

PATIENT
  Age: 76 Year
  Sex: Male

DRUGS (4)
  1. BRILIQUE [Suspect]
     Active Substance: TICAGRELOR
     Indication: ANEURYSM
     Dosage: 80 MG, Q12H
     Route: 048
  2. NOREPINEPHRINE. [Concomitant]
     Active Substance: NOREPINEPHRINE
     Indication: PRODUCT USED FOR UNKNOWN INDICATION
     Dosage: 0.4 UG/KG/MIN
     Route: 065
  3. MOXIFLOXACIN. [Suspect]
     Active Substance: MOXIFLOXACIN
     Indication: PRODUCT USED FOR UNKNOWN INDICATION
     Dosage: 400 MG, QD
     Route: 065
  4. NOREPINEPHRINE. [Concomitant]
     Active Substance: NOREPINEPHRINE
     Dosage: MAXIMAL 0.22 ?G/KGKG/MIN
     Route: 065

REACTIONS (5)
  - Blood pressure decreased [Unknown]
  - Heart rate increased [Unknown]
  - Anaphylactic reaction [Unknown]
  - Tachycardia [Unknown]
  - Pneumonia aspiration [Unknown]
